FAERS Safety Report 6236389-0 (Version None)
Quarter: 2009Q2

REPORT INFORMATION
  Report Type: 
  Country: None (occurrence: None)
  Receive Date: 20090619
  Receipt Date: 20090608
  Transmission Date: 20091009
  Serious: Yes (Other)
  Sender: FDA-Public Use
  Company Number: US-AMGEN-QUU335353

PATIENT
  Sex: Female

DRUGS (3)
  1. NEUPOGEN [Suspect]
     Indication: CHEMOTHERAPY
     Route: 058
     Dates: start: 20090223, end: 20090501
  2. DOXORUBICIN HYDROCHLORIDE [Concomitant]
     Dates: start: 20090209, end: 20090402
  3. CYTOXAN [Concomitant]
     Dates: start: 20090209, end: 20090402

REACTIONS (6)
  - ABASIA [None]
  - BONE PAIN [None]
  - CHEST PAIN [None]
  - DIZZINESS [None]
  - DYSPNOEA [None]
  - FEELING ABNORMAL [None]
